FAERS Safety Report 7496143-9 (Version None)
Quarter: 2011Q2

REPORT INFORMATION
  Report Type: 
  Country: None (occurrence: None)
  Receive Date: 20110523
  Receipt Date: 20110509
  Transmission Date: 20111010
  Serious: Yes (Hospitalization)
  Sender: FDA-Public Use
  Company Number: PHHY2011US37138

PATIENT
  Sex: Male
  Weight: 120.64 kg

DRUGS (2)
  1. ASPIRIN [Suspect]
     Dosage: 81 MG, DAILY
     Route: 048
     Dates: start: 20090810
  2. TASIGNA [Suspect]
     Indication: CHRONIC MYELOID LEUKAEMIA
     Dosage: 200 MG, BID
     Route: 048
     Dates: start: 20110104

REACTIONS (1)
  - CEREBROVASCULAR ACCIDENT [None]
